FAERS Safety Report 10660038 (Version 1)
Quarter: 2014Q4

REPORT INFORMATION
  Report Type: Spontaneous
  Country: US (occurrence: US)
  Receive Date: 20141217
  Receipt Date: 20141217
  Transmission Date: 20150529
  Serious: Yes (Other)
  Sender: FDA-Public Use
  Company Number: US-GLAXOSMITHKLINE-US2014GSK036849

PATIENT
  Age: 61 Year
  Sex: Female

DRUGS (1)
  1. COREG [Suspect]
     Active Substance: CARVEDILOL
     Indication: TREMOR

REACTIONS (1)
  - Gallbladder operation [Unknown]

NARRATIVE: CASE EVENT DATE: 20141211
